FAERS Safety Report 21172410 (Version 8)
Quarter: 2024Q3

REPORT INFORMATION
  Report Type: Report from Study
  Country: US (occurrence: US)
  Receive Date: 20220804
  Receipt Date: 20240724
  Transmission Date: 20241017
  Serious: Yes (Other)
  Sender: NOVARTIS
  Company Number: NVSC2022US176380

PATIENT
  Age: 44 Year
  Sex: Female
  Weight: 62.2 kg

DRUGS (1)
  1. KESIMPTA [Suspect]
     Active Substance: OFATUMUMAB
     Indication: Multiple sclerosis
     Dosage: UNK UNK, 28D
     Route: 058

REACTIONS (6)
  - Multiple sclerosis [Unknown]
  - Pneumonia [Unknown]
  - Memory impairment [Unknown]
  - Cough [Unknown]
  - Nasopharyngitis [Unknown]
  - Product distribution issue [Unknown]

NARRATIVE: CASE EVENT DATE: 20200601
